FAERS Safety Report 8135719-2 (Version None)
Quarter: 2012Q1

REPORT INFORMATION
  Report Type: 
  Country: None (occurrence: None)
  Receive Date: 20120214
  Receipt Date: 20120210
  Transmission Date: 20120608
  Serious: Yes (Other)
  Sender: FDA-Public Use
  Company Number: US-GLAXOSMITHKLINE-A0965452A

PATIENT
  Age: 75 Year
  Sex: Female

DRUGS (3)
  1. MICARDIS [Concomitant]
     Dates: end: 20120210
  2. CARVEDILOL [Concomitant]
  3. ALLI [Suspect]
     Indication: WEIGHT LOSS DIET
     Route: 048

REACTIONS (8)
  - HYPOTENSION [None]
  - FATIGUE [None]
  - DYSPNOEA EXERTIONAL [None]
  - DIZZINESS [None]
  - DECREASED APPETITE [None]
  - ATRIAL FIBRILLATION [None]
  - ASTHENIA [None]
  - DYSPNOEA [None]
